FAERS Safety Report 6257276-8 (Version None)
Quarter: 2009Q3

REPORT INFORMATION
  Report Type: 
  Country: None (occurrence: None)
  Receive Date: 20090706
  Receipt Date: 20090624
  Transmission Date: 20100115
  Serious: Yes (Disabling, Other)
  Sender: FDA-Public Use
  Company Number: US-ELI_LILLY_AND_COMPANY-US200906006084

PATIENT
  Age: 77 Year
  Sex: Male

DRUGS (6)
  1. ZYPREXA [Suspect]
     Dates: end: 20090527
  2. ZYPREXA ZYDIS [Suspect]
     Dosage: 5 MG, 2/D
     Route: 048
     Dates: start: 20090528, end: 20090101
  3. ZYPREXA ZYDIS [Suspect]
     Dosage: 2.5 MG, EACH MORNING
     Dates: start: 20090101
  4. ZYPREXA ZYDIS [Suspect]
     Dosage: 5 MG, EACH EVENING
     Dates: start: 20090101
  5. CITALOPRAM HYDROBROMIDE [Concomitant]
     Dosage: 5 MG, UNK
  6. PROPRANOLOL HYDROCHLORIDE [Concomitant]

REACTIONS (3)
  - ABASIA [None]
  - CONDITION AGGRAVATED [None]
  - EXTRAPYRAMIDAL DISORDER [None]
